FAERS Safety Report 5093077-4 (Version None)
Quarter: 2006Q3

REPORT INFORMATION
  Report Type: 
  Country: None (occurrence: None)
  Receive Date: 20060830
  Receipt Date: 20060818
  Transmission Date: 20061208
  Serious: Yes (Hospitalization, Other)
  Sender: FDA-Public Use
  Company Number: US-BRISTOL-MYERS SQUIBB COMPANY-13482427

PATIENT
  Age: 77 Year
  Sex: Female

DRUGS (7)
  1. DASATINIB [Suspect]
     Indication: CHRONIC MYELOID LEUKAEMIA
     Dosage: 15FEB TO 13MAR06; RESUMED AT 1DOSE LEVEL 27MAR06 - INTERRUPTED 14AUG06
     Route: 048
     Dates: start: 20060327
  2. TOPROL-XL [Concomitant]
  3. FOSAMAX [Concomitant]
  4. EVISTA [Concomitant]
  5. LASIX [Concomitant]
     Dosage: 20-40 MG DAILY AS NEEDED FOR SWELLING
  6. IRON [Concomitant]
  7. MULTI-VITAMIN [Concomitant]

REACTIONS (4)
  - ATRIAL FIBRILLATION [None]
  - DIASTOLIC DYSFUNCTION [None]
  - HEART RATE IRREGULAR [None]
  - PLEURAL EFFUSION [None]
